FAERS Safety Report 7399081-5 (Version None)
Quarter: 2011Q1

REPORT INFORMATION
  Report Type: 
  Country: None (occurrence: None)
  Receive Date: 20110328
  Receipt Date: 20110119
  Transmission Date: 20110831
  Serious: Yes (Life-Threatening)
  Sender: FDA-Public Use
  Company Number: 2010P1002957

PATIENT
  Sex: Female
  Weight: 53.5244 kg

DRUGS (9)
  1. HYDROCODONE [Concomitant]
  2. FENTANYL [Suspect]
     Indication: NEURALGIA
     Dates: start: 20100301, end: 20101101
  3. FENTANYL [Suspect]
     Indication: FIBROMYALGIA
     Dates: start: 20100301, end: 20101101
  4. FENTANYL [Suspect]
     Indication: CLUSTER HEADACHE
     Dates: start: 20100301, end: 20101101
  5. INDERAL [Concomitant]
  6. FENTANYL [Suspect]
     Indication: NEURALGIA
     Dosage: 1 PATCH/Q3D; TDER
     Route: 062
     Dates: start: 20101101, end: 20101126
  7. FENTANYL [Suspect]
     Indication: FIBROMYALGIA
     Dosage: 1 PATCH/Q3D; TDER
     Route: 062
     Dates: start: 20101101, end: 20101126
  8. FENTANYL [Suspect]
     Indication: CLUSTER HEADACHE
     Dosage: 1 PATCH/Q3D; TDER
     Route: 062
     Dates: start: 20101101, end: 20101126
  9. XANAX [Concomitant]

REACTIONS (17)
  - APPLICATION SITE VESICLES [None]
  - PRODUCT ADHESION ISSUE [None]
  - VOMITING [None]
  - PRURITUS [None]
  - CONFUSIONAL STATE [None]
  - APPLICATION SITE BLEEDING [None]
  - DYSPNOEA [None]
  - MUSCLE SPASMS [None]
  - DRUG WITHDRAWAL SYNDROME [None]
  - APPLICATION SITE ERYTHEMA [None]
  - APPLICATION SITE PAIN [None]
  - APPLICATION SITE DISCOLOURATION [None]
  - THINKING ABNORMAL [None]
  - PLATELET DISORDER [None]
  - PRODUCT QUALITY ISSUE [None]
  - APPLICATION SITE RASH [None]
  - CONTUSION [None]
